FAERS Safety Report 4715760-X (Version None)
Quarter: 2005Q3

REPORT INFORMATION
  Report Type: 
  Country: None (occurrence: None)
  Receive Date: 20050718
  Receipt Date: 20050706
  Transmission Date: 20060218
  Serious: Yes (Hospitalization)
  Sender: FDA-Public Use
  Company Number: GBWYE804006JUL05

PATIENT
  Sex: Female
  Weight: 95 kg

DRUGS (14)
  1. ENBREL [Suspect]
     Indication: PSORIATIC ARTHROPATHY
     Route: 058
     Dates: start: 20031206, end: 20050519
  2. ENBREL [Suspect]
     Dates: start: 20050618
  3. PREDNISOLONE [Concomitant]
     Route: 065
  4. ARTHROTEC [Concomitant]
     Route: 065
  5. ACETAMINOPHEN W/ CODEINE [Concomitant]
     Route: 065
  6. DF118 [Concomitant]
     Route: 065
  7. ORAMORPH SR [Concomitant]
     Route: 065
  8. DICLOFENAC SODIUM [Concomitant]
     Route: 065
  9. ALENDRONIC ACID [Concomitant]
     Route: 065
  10. BENDROFLUAZIDE [Concomitant]
     Route: 065
  11. RAMIPRIL [Concomitant]
     Route: 065
  12. AMITRIPTYLINE HCL [Concomitant]
     Route: 065
  13. LANSOPRAZOLE [Concomitant]
     Route: 065
  14. PAROXETINE HCL [Concomitant]
     Route: 065

REACTIONS (2)
  - DIARRHOEA HAEMORRHAGIC [None]
  - URINARY TRACT INFECTION [None]
